FAERS Safety Report 5391381-3 (Version None)
Quarter: 2007Q3

REPORT INFORMATION
  Report Type: 
  Country: None (occurrence: None)
  Receive Date: 20070716
  Receipt Date: 20070716
  Transmission Date: 20080115
  Serious: No
  Sender: FDA-Public Use
  Company Number: None

PATIENT

DRUGS (2)
  1. WARFARIN SODIUM [Suspect]
  2. TRIMETHOPRIM + SULFAMETHOXAZOLE [Suspect]

REACTIONS (23)
  - ABDOMINAL PAIN UPPER [None]
  - ATRIAL FIBRILLATION [None]
  - COAGULOPATHY [None]
  - DIARRHOEA [None]
  - DIZZINESS [None]
  - DRUG INTERACTION [None]
  - DYSPNOEA PAROXYSMAL NOCTURNAL [None]
  - EJECTION FRACTION DECREASED [None]
  - ELECTROCARDIOGRAM QT PROLONGED [None]
  - FALL [None]
  - FRACTURE [None]
  - HAEMATEMESIS [None]
  - HEART RATE INCREASED [None]
  - HEART RATE IRREGULAR [None]
  - INTERNATIONAL NORMALISED RATIO DECREASED [None]
  - MEDICATION ERROR [None]
  - NAUSEA [None]
  - OEDEMA PERIPHERAL [None]
  - ORTHOPNOEA [None]
  - PYREXIA [None]
  - SKIN WARM [None]
  - SMALL INTESTINAL HAEMORRHAGE [None]
  - WEIGHT INCREASED [None]
